FAERS Safety Report 6041487-0 (Version None)
Quarter: 2009Q1

REPORT INFORMATION
  Report Type: 
  Country: None (occurrence: None)
  Receive Date: 20090116
  Receipt Date: 20081020
  Transmission Date: 20090719
  Serious: Yes (Hospitalization, Other)
  Sender: FDA-Public Use
  Company Number: US-BRISTOL-MYERS SQUIBB COMPANY-14376610

PATIENT
  Age: 64 Year
  Sex: Female

DRUGS (2)
  1. ABILIFY [Suspect]
     Indication: SCHIZOPHRENIA, PARANOID TYPE
     Dosage: 7 SAMPLE TABLETS
  2. CYMBALTA [Concomitant]

REACTIONS (2)
  - OVERDOSE [None]
  - SUICIDE ATTEMPT [None]
